FAERS Safety Report 4770186-8 (Version None)
Quarter: 2005Q3

REPORT INFORMATION
  Report Type: 
  Country: None (occurrence: None)
  Receive Date: 20050915
  Receipt Date: 20050909
  Transmission Date: 20060218
  Serious: Yes (Other)
  Sender: FDA-Public Use
  Company Number: CA-MERCK-0509USA01132

PATIENT
  Age: 78 Year
  Sex: Male

DRUGS (5)
  1. SINGULAIR [Suspect]
     Route: 048
  2. VENTOLIN [Concomitant]
     Route: 065
  3. COMBIVENT [Concomitant]
     Route: 065
  4. PULMICORT [Concomitant]
     Route: 065
  5. SEREVENT [Concomitant]
     Route: 065

REACTIONS (4)
  - DISORIENTATION [None]
  - FLUSHING [None]
  - LOSS OF CONSCIOUSNESS [None]
  - TACHYCARDIA [None]
